FAERS Safety Report 5886675-9 (Version None)
Quarter: 2008Q3

REPORT INFORMATION
  Report Type: 
  Country: None (occurrence: None)
  Receive Date: 20080917
  Receipt Date: 20080910
  Transmission Date: 20090109
  Serious: Yes (Other)
  Sender: FDA-Public Use
  Company Number: PHHY2008JP21090

PATIENT
  Sex: Female

DRUGS (2)
  1. ZOLEDRONIC ACID [Suspect]
     Indication: BREAST CANCER
     Dosage: 4 MG (ONLY ONCE)
     Route: 042
     Dates: start: 20080312
  2. TS 1 [Concomitant]
     Dosage: 120 MG
     Route: 048
     Dates: start: 20070312

REACTIONS (1)
  - OSTEONECROSIS [None]
